FAERS Safety Report 18413001 (Version 1)
Quarter: 2020Q4

REPORT INFORMATION
  Report Type: Report from Study
  Country: US (occurrence: US)
  Receive Date: 20201021
  Receipt Date: 20201021
  Transmission Date: 20210114
  Serious: Yes (Hospitalization, Other)
  Sender: FDA-Public Use
  Company Number: US-BRISTOL-MYERS SQUIBB COMPANY-BMS-2020-086088

PATIENT
  Age: 72 Year
  Sex: Female
  Weight: 34.15 kg

DRUGS (4)
  1. NIVOLUMAB [Suspect]
     Active Substance: NIVOLUMAB
     Indication: OESOPHAGEAL ADENOCARCINOMA
     Dosage: 240 MILLIGRAM
     Route: 042
     Dates: start: 20200731
  2. CARBOPLATIN. [Suspect]
     Active Substance: CARBOPLATIN
     Indication: OESOPHAGEAL ADENOCARCINOMA
     Dosage: 180 MILLIGRAM
     Route: 042
     Dates: start: 20200831
  3. RELATLIMAB [Suspect]
     Active Substance: RELATLIMAB
     Indication: OESOPHAGEAL ADENOCARCINOMA
     Dosage: 80 MILLIGRAM
     Route: 042
     Dates: start: 20200731
  4. PACLITAXEL. [Suspect]
     Active Substance: PACLITAXEL
     Indication: OESOPHAGEAL ADENOCARCINOMA
     Dosage: 90 MILLIGRAM
     Route: 042
     Dates: start: 20200831

REACTIONS (1)
  - Diverticulitis [Recovered/Resolved with Sequelae]

NARRATIVE: CASE EVENT DATE: 20201008
